FAERS Safety Report 16706688 (Version 6)
Quarter: 2025Q2

REPORT INFORMATION
  Report Type: Spontaneous
  Country: JP (occurrence: JP)
  Receive Date: 20190815
  Receipt Date: 20250617
  Transmission Date: 20250717
  Serious: Yes (Other)
  Sender: LUNDBECK
  Company Number: JP-SANOFI-2017SA145546

PATIENT
  Age: 2 Year
  Sex: Female

DRUGS (22)
  1. SABRIL [Suspect]
     Active Substance: VIGABATRIN
     Indication: Infantile spasms
     Dosage: 245 MG, BID
     Route: 048
     Dates: start: 20170601, end: 20170604
  2. SABRIL [Suspect]
     Active Substance: VIGABATRIN
     Dosage: 300 MG, BID
     Route: 048
     Dates: start: 20180906, end: 20180926
  3. SABRIL [Suspect]
     Active Substance: VIGABATRIN
     Dosage: 450 MG, BID
     Route: 048
     Dates: start: 20180927, end: 20181014
  4. SABRIL [Suspect]
     Active Substance: VIGABATRIN
     Dosage: 600 MG, BID
     Route: 048
     Dates: start: 20181015, end: 20181031
  5. SABRIL [Suspect]
     Active Substance: VIGABATRIN
     Dosage: 750 MG, BID
     Route: 048
     Dates: start: 20181101, end: 20181106
  6. SABRIL [Suspect]
     Active Substance: VIGABATRIN
     Dosage: 744.5 MG, BID
     Route: 048
     Dates: start: 20181107, end: 20181121
  7. SABRIL [Suspect]
     Active Substance: VIGABATRIN
     Dosage: 900 MG, BID
     Route: 048
     Dates: start: 20181122, end: 20190303
  8. SABRIL [Suspect]
     Active Substance: VIGABATRIN
     Dosage: 1200 MG, BID
     Route: 048
     Dates: start: 20190304, end: 20190317
  9. SABRIL [Suspect]
     Active Substance: VIGABATRIN
     Dosage: 900 MG, BID
     Route: 048
     Dates: start: 20190318, end: 20190905
  10. SABRIL [Suspect]
     Active Substance: VIGABATRIN
     Dosage: 600 MG, BID
     Route: 048
     Dates: start: 20190906, end: 20190926
  11. SABRIL [Suspect]
     Active Substance: VIGABATRIN
     Dosage: 300 MG, BID
     Route: 048
     Dates: start: 20190927, end: 20191017
  12. SABRIL [Suspect]
     Active Substance: VIGABATRIN
     Dosage: 375 MG, BID
     Route: 048
     Dates: start: 20170605, end: 20170612
  13. SABRIL [Suspect]
     Active Substance: VIGABATRIN
     Dosage: 150 MG, BID
     Route: 048
     Dates: start: 20191018, end: 20191110
  14. SABRIL [Suspect]
     Active Substance: VIGABATRIN
     Dosage: 500 MG, BID
     Route: 048
     Dates: start: 20170613, end: 20170619
  15. SABRIL [Suspect]
     Active Substance: VIGABATRIN
     Dosage: 750 MG, BID
     Route: 048
     Dates: start: 20170620, end: 20170629
  16. SABRIL [Suspect]
     Active Substance: VIGABATRIN
     Dosage: 505 MG, BID
     Route: 048
     Dates: start: 20170630, end: 20170702
  17. SABRIL [Suspect]
     Active Substance: VIGABATRIN
     Dosage: 378.75 MG, BID
     Route: 048
     Dates: start: 20170703, end: 20170707
  18. SABRIL [Suspect]
     Active Substance: VIGABATRIN
     Dosage: 257.5 MG, BID
     Route: 048
     Dates: start: 20170708, end: 20170711
  19. SABRIL [Suspect]
     Active Substance: VIGABATRIN
     Dosage: 300 MG, BID
     Route: 048
     Dates: start: 20180803, end: 20180819
  20. SABRIL [Suspect]
     Active Substance: VIGABATRIN
     Dosage: 450 MG, BID
     Route: 048
     Dates: start: 20180820, end: 20180905
  21. ZONISAMIDE [Concomitant]
     Active Substance: ZONISAMIDE
     Indication: Infantile spasms
     Route: 048
     Dates: start: 2018
  22. TOPIRAMATE [Concomitant]
     Active Substance: TOPIRAMATE
     Indication: Infantile spasms
     Route: 048
     Dates: start: 2018

REACTIONS (3)
  - Retinogram abnormal [Unknown]
  - Drug ineffective [Unknown]
  - Drug ineffective [Unknown]

NARRATIVE: CASE EVENT DATE: 20180801
